FAERS Safety Report 4501547-X (Version None)
Quarter: 2004Q3

REPORT INFORMATION
  Report Type: 
  Country: None (occurrence: None)
  Receive Date: 20040928
  Receipt Date: 20040827
  Transmission Date: 20050211
  Serious: No
  Sender: FDA-Public Use
  Company Number: 04P-163-0271687-00

PATIENT
  Age: 44 Year
  Sex: Male
  Weight: 86.1834 kg

DRUGS (8)
  1. HUMIRA [Suspect]
     Indication: RHEUMATOID ARTHRITIS
     Dosage: 40 MG, 1 IN 2 WK, SUBCUTANEOUS
     Route: 058
     Dates: start: 20040715
  2. PREDNISONE [Concomitant]
  3. BUPROPION HYDROCHLORIDE [Concomitant]
  4. BUPRENORPHINE HCL [Concomitant]
  5. NOVOLIN 20/80 [Concomitant]
  6. DOXEPIN HCL [Concomitant]
  7. METHOTREXATE SODIUM [Concomitant]
  8. FOLIC ACID [Concomitant]

REACTIONS (2)
  - ARTHRALGIA [None]
  - INJECTION SITE SWELLING [None]
